FAERS Safety Report 10529016 (Version 2)
Quarter: 2014Q4

REPORT INFORMATION
  Report Type: Report from Study
  Country: FR (occurrence: FR)
  Receive Date: 20141020
  Receipt Date: 20141020
  Transmission Date: 20150528
  Serious: Yes (Hospitalization, Other)
  Sender: FDA-Public Use
  Company Number: FR-SA-THYM-1001376

PATIENT
  Age: 65 Year
  Sex: Male
  Weight: 70 kg

DRUGS (33)
  1. HEPARIN-FRACTION, SODIUM SALT [Concomitant]
     Active Substance: HEPARIN SODIUM
     Indication: THROMBOSIS PROPHYLAXIS
     Dosage: 0.4 ML, QD
     Dates: start: 20091130
  2. INEXIUM [Concomitant]
     Active Substance: ESOMEPRAZOLE
     Dates: start: 20091120
  3. ACTRAPID [Concomitant]
     Active Substance: INSULIN HUMAN
     Dates: start: 20141009
  4. LEVOFLOXACIN. [Concomitant]
     Active Substance: LEVOFLOXACIN
     Indication: PRODUCT USED FOR UNKNOWN INDICATION
     Dosage: 500 MG, QD
  5. ALBUMIN [Concomitant]
     Active Substance: ALBUMIN (HUMAN)
     Dates: start: 20091124, end: 20091126
  6. LASILIX [Concomitant]
     Active Substance: FUROSEMIDE
     Dates: start: 20091124, end: 20091127
  7. CHLORHEXIDINE [Concomitant]
     Active Substance: CHLORHEXIDINE
     Dates: start: 20091128
  8. TRIFLUCAN [Concomitant]
     Active Substance: FLUCONAZOLE
     Dates: start: 20091117
  9. AMINOACETIC ACID [Concomitant]
     Active Substance: GLYCINE
     Indication: BRADYCARDIA
     Dosage: 250 MG, QD
     Dates: start: 20091130
  10. TAZOCILLINE [Concomitant]
     Active Substance: PIPERACILLIN SODIUM\TAZOBACTAM SODIUM
     Indication: PRODUCT USED FOR UNKNOWN INDICATION
     Dosage: 4 G, TID
  11. XATRAL [Concomitant]
     Active Substance: ALFUZOSIN
     Dates: start: 20091118, end: 20091125
  12. SINEMET [Concomitant]
     Active Substance: CARBIDOPA\LEVODOPA
     Dates: start: 2007, end: 20091208
  13. PERFALGAN [Concomitant]
     Active Substance: ACETAMINOPHEN
     Indication: PROPHYLAXIS
     Dates: start: 20091125, end: 20091127
  14. CICLOSPORIN [Concomitant]
     Active Substance: CYCLOSPORINE
     Indication: PROPHYLAXIS AGAINST GRAFT VERSUS HOST DISEASE
     Dosage: 100 MG, TID
     Dates: start: 20090910, end: 20091125
  15. ACICLOVIR [Concomitant]
     Active Substance: ACYCLOVIR
     Dates: start: 20091125
  16. NEORAL [Concomitant]
     Active Substance: CYCLOSPORINE
     Dates: start: 20091010, end: 20091119
  17. BACTRIM [Concomitant]
     Active Substance: SULFAMETHOXAZOLE\TRIMETHOPRIM
     Dates: start: 20091128, end: 20100103
  18. BACTRIM [Concomitant]
     Active Substance: SULFAMETHOXAZOLE\TRIMETHOPRIM
     Indication: PRODUCT USED FOR UNKNOWN INDICATION
     Dosage: 400 MG, BID
     Dates: start: 20091128, end: 20100103
  19. SODIUM BICARBONATE. [Concomitant]
     Active Substance: SODIUM BICARBONATE
     Dates: start: 20091117, end: 20091229
  20. MYCOSTATINE [Concomitant]
     Dates: start: 20091117, end: 20091125
  21. SPASFON [Concomitant]
     Active Substance: PHLOROGLUCINOL
     Dates: start: 20091117, end: 20091129
  22. ANTI-THYMOCYTE GLOBULIN (RABBIT) [Suspect]
     Active Substance: LAPINE T-LYMPHOCYTE IMMUNE GLOBULIN
     Indication: ACUTE GRAFT VERSUS HOST DISEASE
     Dosage: 2.5 MG/KG, QD
     Route: 042
     Dates: start: 20091125, end: 20091125
  23. ANTI-THYMOCYTE GLOBULIN (RABBIT) [Suspect]
     Active Substance: LAPINE T-LYMPHOCYTE IMMUNE GLOBULIN
     Indication: ACUTE GRAFT VERSUS HOST DISEASE
     Dosage: 2.5 MG/KG, QD
     Route: 042
     Dates: start: 20091127, end: 20091127
  24. ANTI-THYMOCYTE GLOBULIN (RABBIT) [Suspect]
     Active Substance: LAPINE T-LYMPHOCYTE IMMUNE GLOBULIN
     Indication: ACUTE GRAFT VERSUS HOST DISEASE
     Dosage: 2.5 MG/KG, QD
     Route: 042
     Dates: start: 20091129, end: 20091129
  25. LOPERAMIDE HYDROCHLORIDE. [Concomitant]
     Active Substance: LOPERAMIDE HYDROCHLORIDE
     Indication: FUNGAL INFECTION
     Dosage: UNK
     Dates: start: 20091129, end: 20091129
  26. DEBRIDAT [Concomitant]
     Active Substance: TRIMEBUTINE MALEATE
     Dates: start: 20091119, end: 20091129
  27. ACUPAN [Concomitant]
     Active Substance: NEFOPAM HYDROCHLORIDE
     Dates: start: 20091119, end: 20091129
  28. TENORMIN [Concomitant]
     Active Substance: ATENOLOL
     Indication: CHEST PAIN
     Dates: start: 20091129, end: 20091129
  29. REQUIP [Concomitant]
     Active Substance: ROPINIROLE HYDROCHLORIDE
     Dates: start: 2007, end: 20091208
  30. FUNGIZONE [Concomitant]
     Active Substance: AMPHOTERICIN B
     Dates: start: 20091128, end: 20100119
  31. POLARAMINE [Concomitant]
     Active Substance: DEXCHLORPHENIRAMINE MALEATE
     Indication: PREMEDICATION
     Dates: start: 20091125, end: 20091129
  32. COLD CREAM [Concomitant]
     Active Substance: COLD CREAM
     Dates: start: 20091128
  33. ACTRAPID [Concomitant]
     Active Substance: INSULIN HUMAN
     Dates: start: 20091125, end: 20091125

REACTIONS (3)
  - Urinary tract infection [Recovered/Resolved]
  - BK virus infection [Recovered/Resolved]
  - Myocardial infarction [Recovered/Resolved]

NARRATIVE: CASE EVENT DATE: 20091127
